FAERS Safety Report 7467879-0 (Version None)
Quarter: 2011Q2

REPORT INFORMATION
  Report Type: 
  Country: None (occurrence: None)
  Receive Date: 20110505
  Receipt Date: 20110505
  Transmission Date: 20111010
  Serious: No
  Sender: FDA-Public Use
  Company Number: None

PATIENT
  Age: 44 Year
  Sex: Female
  Weight: 70.3075 kg

DRUGS (1)
  1. OMNARIS [Suspect]
     Indication: MULTIPLE ALLERGIES

REACTIONS (2)
  - DRUG INEFFECTIVE [None]
  - ANOSMIA [None]
